FAERS Safety Report 12090041 (Version 1)
Quarter: 2016Q1

REPORT INFORMATION
  Report Type: Spontaneous
  Country: GB (occurrence: GB)
  Receive Date: 20160218
  Receipt Date: 20160218
  Transmission Date: 20160526
  Serious: Yes (Other)
  Sender: FDA-Public Use
  Company Number: GB-ELI_LILLY_AND_COMPANY-GB201602003072

PATIENT
  Age: 68 Year
  Sex: Female
  Weight: 114 kg

DRUGS (14)
  1. ISPAGHULA EXTRACT\PSYLLIUM [Concomitant]
     Active Substance: PLANTAGO OVATA SEED\PLANTAGO SEED
     Dosage: 1 DF, UNKNOWN
     Dates: start: 20160105, end: 20160115
  2. ROSUVASTATIN [Concomitant]
     Active Substance: ROSUVASTATIN
     Dosage: 1 DF, QD
     Dates: start: 20150928
  3. SELENIUM SULFIDE. [Concomitant]
     Active Substance: SELENIUM SULFIDE
     Dosage: USE AS DIRECTED
     Dates: start: 20151208, end: 20151209
  4. ATENOLOL. [Concomitant]
     Active Substance: ATENOLOL
     Dosage: 1 DF, QD
     Dates: start: 20150928
  5. PARACETAMOL [Concomitant]
     Active Substance: ACETAMINOPHEN
     Dosage: TAKE 1 OR 2, QID
     Dates: start: 20160105
  6. ADCAL                              /07357001/ [Concomitant]
     Dosage: 1 DF, BID
     Dates: start: 20150928, end: 20151117
  7. PIROXICAM. [Concomitant]
     Active Substance: PIROXICAM
     Dates: start: 20150928
  8. CODEINE PHOSPHATE [Concomitant]
     Active Substance: CODEINE PHOSPHATE
     Dosage: TAKE 1 OR 2, QID
     Dates: start: 20160105, end: 20160117
  9. DULOXETINE HYDROCHLORIDE. [Suspect]
     Active Substance: DULOXETINE HYDROCHLORIDE
     Indication: PRODUCT USED FOR UNKNOWN INDICATION
     Dosage: UNK UNK, UNKNOWN
     Route: 065
     Dates: start: 20150928
  10. PEPPERMINT OIL [Concomitant]
     Active Substance: PEPPERMINT OIL
     Dosage: 1 DF, TID
     Dates: start: 20150928
  11. BUMETANIDE. [Concomitant]
     Active Substance: BUMETANIDE
     Dosage: 1 DF, QD
     Dates: start: 20150928
  12. PANTOPRAZOLE [Concomitant]
     Active Substance: PANTOPRAZOLE SODIUM
     Dosage: 1 DF, QD
     Dates: start: 20150928
  13. ACCRETE D3 [Concomitant]
     Dosage: 1 DF, BID
     Dates: start: 20151117
  14. GAVISCON [Concomitant]
     Active Substance: ALUMINUM HYDROXIDE\MAGNESIUM CARBONATE
     Dosage: 1 TO 2 TO BE TAKEN FOUR TIMES DAILY AS REQURIED
     Dates: start: 20150928

REACTIONS (2)
  - Incontinence [Recovered/Resolved]
  - Nausea [Recovered/Resolved]

NARRATIVE: CASE EVENT DATE: 20160201
